FAERS Safety Report 18180794 (Version 1)
Quarter: 2020Q3

REPORT INFORMATION
  Report Type: Spontaneous
  Country: US (occurrence: US)
  Receive Date: 20200820
  Receipt Date: 20200820
  Transmission Date: 20201103
  Serious: Yes (Hospitalization)
  Sender: FDA-Public Use
  Company Number: None

PATIENT
  Sex: Male

DRUGS (5)
  1. FUROSEMIDE. [Concomitant]
     Active Substance: FUROSEMIDE
  2. CEFDINIR. [Concomitant]
     Active Substance: CEFDINIR
  3. SILDENAFIL 20MG TAB [Suspect]
     Active Substance: SILDENAFIL
     Indication: CONGENITAL ARTERIAL MALFORMATION
     Route: 048
     Dates: start: 20200201
  4. AMOXICILLIN. [Concomitant]
     Active Substance: AMOXICILLIN
  5. MUPIROCIN. [Concomitant]
     Active Substance: MUPIROCIN

REACTIONS (1)
  - Cardiac operation [None]
